FAERS Safety Report 14548586 (Version 2)
Quarter: 2020Q2

REPORT INFORMATION
  Report Type: Report from Study
  Country: PR (occurrence: US)
  Receive Date: 20180219
  Receipt Date: 20200511
  Transmission Date: 20200713
  Serious: Yes (Hospitalization)
  Sender: FDA-Public Use
  Company Number: US-ACTELION-A-US2018-167747

PATIENT
  Age: 67 Year
  Sex: Female

DRUGS (1)
  1. OPSUMIT [Suspect]
     Active Substance: MACITENTAN
     Indication: PULMONARY ARTERIAL HYPERTENSION
     Dosage: 10 MG, QD
     Route: 048
     Dates: start: 20170914

REACTIONS (5)
  - Hypothyroidism [Unknown]
  - Blood glucose increased [Recovered/Resolved]
  - Insulin resistance [Recovered/Resolved]
  - Sleep apnoea syndrome [Unknown]
  - Obesity [Unknown]

NARRATIVE: CASE EVENT DATE: 20171107
